FAERS Safety Report 15837984 (Version 1)
Quarter: 2019Q1

REPORT INFORMATION
  Report Type: Spontaneous
  Country: IT (occurrence: IT)
  Receive Date: 20190117
  Receipt Date: 20190117
  Transmission Date: 20190417
  Serious: Yes (Hospitalization, Other)
  Sender: FDA-Public Use
  Company Number: IT-GLAXOSMITHKLINE-IT2018GSK227091

PATIENT

DRUGS (3)
  1. ACITRETIN. [Suspect]
     Active Substance: ACITRETIN
     Dosage: 1 DF, 1D {50 MG, QD
     Route: 065
  2. ACITRETIN. [Suspect]
     Active Substance: ACITRETIN
     Indication: PSORIASIS
     Dosage: LOWEST EFFECTIVE DOSAGE
     Route: 065
  3. ACITRETIN. [Suspect]
     Active Substance: ACITRETIN
     Dosage: 10 MG, 1D
     Route: 065

REACTIONS (20)
  - Drug intolerance [Recovered/Resolved]
  - Depression [Recovered/Resolved]
  - Myalgia [Recovered/Resolved]
  - Irritability [Recovered/Resolved]
  - Xerophthalmia [Recovered/Resolved]
  - Gastrointestinal disorder [Recovered/Resolved]
  - Gamma-glutamyltransferase increased [Recovered/Resolved]
  - Visual impairment [Recovered/Resolved]
  - Headache [Recovered/Resolved]
  - Blood bilirubin increased [Recovered/Resolved]
  - Hospitalisation [Unknown]
  - Psoriasis [Recovered/Resolved]
  - Fatigue [Recovered/Resolved]
  - Hyperlipidaemia [Recovered/Resolved]
  - Cheilitis [Recovered/Resolved]
  - Drug ineffective [Unknown]
  - Tremor [Recovered/Resolved]
  - Alopecia [Recovered/Resolved]
  - Transaminases increased [Recovered/Resolved]
  - Photosensitivity reaction [Recovered/Resolved]
